FAERS Safety Report 25751115 (Version 3)
Quarter: 2025Q4

REPORT INFORMATION
  Report Type: Report from Study
  Country: CA (occurrence: CA)
  Receive Date: 20250902
  Receipt Date: 20251219
  Transmission Date: 20260118
  Serious: Yes (Hospitalization, Other)
  Sender: ABBVIE
  Company Number: CA-ABBVIE-6440039

PATIENT
  Age: 43 Year
  Sex: Male

DRUGS (2)
  1. RINVOQ [Suspect]
     Active Substance: UPADACITINIB
     Indication: Crohn^s disease
     Dosage: STRENGTH 30 MG
     Route: 048
     Dates: start: 20241114, end: 20250707
  2. RINVOQ [Suspect]
     Active Substance: UPADACITINIB
     Indication: Crohn^s disease
     Route: 048
     Dates: start: 20240822

REACTIONS (7)
  - Small intestinal resection [Unknown]
  - Post procedural pulmonary embolism [Unknown]
  - Dysstasia [Unknown]
  - Fatigue [Unknown]
  - Colectomy [Unknown]
  - Procedural pain [Unknown]
  - Illness [Unknown]

NARRATIVE: CASE EVENT DATE: 20250101
